FAERS Safety Report 8244047-6 (Version None)
Quarter: 2012Q1

REPORT INFORMATION
  Report Type: 
  Country: None (occurrence: None)
  Receive Date: 20120329
  Receipt Date: 20120314
  Transmission Date: 20120608
  Serious: Yes (Other)
  Sender: FDA-Public Use
  Company Number: DE-JUTA GMBH-2012-04753

PATIENT
  Age: 50 Year
  Sex: Female

DRUGS (6)
  1. VENLAFAXINE HYDROCHLORIDE [Suspect]
     Dosage: 150 MG, DAYS 8-15
     Route: 065
  2. VENLAFAXINE HYDROCHLORIDE [Suspect]
     Dosage: 37.5 MG, DAY 1
     Route: 065
  3. FLUOXETINE HCL [Suspect]
     Indication: DEPRESSION
     Dosage: 60 MG, DAILY
     Route: 065
  4. VENLAFAXINE HYDROCHLORIDE [Suspect]
     Dosage: 75 MG, DAYS 2-7
     Route: 065
  5. VENLAFAXINE HYDROCHLORIDE [Suspect]
     Indication: DEPRESSION
     Dosage: 225 MG, DAY 16
     Route: 065
  6. LITHIUM CARBONATE [Suspect]
     Indication: DEPRESSION
     Dosage: 800 MG, UNK
     Route: 065

REACTIONS (5)
  - DRUG INEFFECTIVE [None]
  - DRUG INTERACTION [None]
  - SEROTONIN SYNDROME [None]
  - CONSTIPATION [None]
  - DRUG LEVEL INCREASED [None]
